FAERS Safety Report 24761015 (Version 4)
Quarter: 2025Q4

REPORT INFORMATION
  Report Type: Report from Study
  Country: JP (occurrence: JP)
  Receive Date: 20241220
  Receipt Date: 20251209
  Transmission Date: 20260118
  Serious: Yes (Hospitalization, Other)
  Sender: ALEXION PHARMACEUTICALS
  Company Number: JP-ASTRAZENECA-240141666_032420_P_1

PATIENT
  Age: 84 Year
  Sex: Female
  Weight: 39 kg

DRUGS (9)
  1. TEZEPELUMAB [Suspect]
     Active Substance: TEZEPELUMAB
     Indication: Asthma
     Dosage: 210 MILLIGRAM
     Dates: start: 20231128, end: 20240813
  2. TEZEPELUMAB [Suspect]
     Active Substance: TEZEPELUMAB
     Dosage: 210 MILLIGRAM
  3. BUDESONIDE\FORMOTEROL [Concomitant]
     Active Substance: BUDESONIDE\FORMOTEROL
     Dosage: NUMBER OF SEPARATE DOSAGES UNKNOWN
  4. PRANLUKAST [Concomitant]
     Active Substance: PRANLUKAST
     Indication: Asthma
     Dosage: NUMBER OF SEPARATE DOSAGES UNKNOWN
  5. PRANLUKAST [Concomitant]
     Active Substance: PRANLUKAST
     Dosage: NUMBER OF SEPARATE DOSAGES UNKNOWN
  6. SPIRIVA [Concomitant]
     Active Substance: TIOTROPIUM BROMIDE MONOHYDRATE
     Dosage: NUMBER OF SEPARATE DOSAGES UNKNOWN
  7. SPIRIVA [Concomitant]
     Active Substance: TIOTROPIUM BROMIDE MONOHYDRATE
     Dosage: NUMBER OF SEPARATE DOSAGES UNKNOWN
  8. TELMISARTAN [Concomitant]
     Active Substance: TELMISARTAN
     Indication: Hypertension
     Dosage: NUMBER OF SEPARATE DOSAGES UNKNOWN
  9. TELMISARTAN [Concomitant]
     Active Substance: TELMISARTAN
     Dosage: NUMBER OF SEPARATE DOSAGES UNKNOWN

REACTIONS (2)
  - Pneumonia [Unknown]
  - Off label use [Unknown]

NARRATIVE: CASE EVENT DATE: 20240813
